FAERS Safety Report 8530085-2 (Version None)
Quarter: 2012Q3

REPORT INFORMATION
  Report Type: 
  Country: None (occurrence: None)
  Receive Date: 20120723
  Receipt Date: 20120718
  Transmission Date: 20120928
  Serious: Yes (Death, Life-Threatening, Hospitalization)
  Sender: FDA-Public Use
  Company Number: PHHY2012CA062192

PATIENT
  Age: 64 Year
  Sex: Male
  Weight: 86 kg

DRUGS (5)
  1. LAMISIL [Suspect]
     Dosage: 250 MG, QD
     Route: 048
  2. GLYBURIDE [Concomitant]
     Dosage: UNK UKN, UNK
  3. METFORMIN HYDROCHLORIDE [Concomitant]
     Dosage: UNK UKN, UNK
  4. ASPIRIN [Concomitant]
     Dosage: UNK UKN, UNK
  5. LIPITOR [Concomitant]
     Dosage: UNK UKN, UNK

REACTIONS (6)
  - DEATH [None]
  - HEPATOTOXICITY [None]
  - DUODENITIS [None]
  - HEPATIC CIRRHOSIS [None]
  - RENAL FAILURE [None]
  - SEPSIS [None]
